FAERS Safety Report 6877139-4 (Version None)
Quarter: 2010Q3

REPORT INFORMATION
  Report Type: 
  Country: None (occurrence: None)
  Receive Date: 20100727
  Receipt Date: 20100719
  Transmission Date: 20110219
  Serious: Yes (Hospitalization)
  Sender: FDA-Public Use
  Company Number: CA-ROCHE-716173

PATIENT
  Sex: Female

DRUGS (8)
  1. MYCOPHENOLATE MOFETIL [Suspect]
     Route: 048
     Dates: start: 20090302
  2. MYCOPHENOLATE MOFETIL [Suspect]
     Dosage: DOSE DECREASED
     Route: 048
     Dates: start: 20100705
  3. CYCLOSPORINE [Suspect]
     Dosage: FORM PER PROTOCOL
     Route: 048
     Dates: start: 20060528
  4. CYCLOSPORINE [Suspect]
     Route: 048
     Dates: start: 20091104
  5. CYCLOSPORINE [Suspect]
     Dosage: DOSE DECREASED
     Route: 048
     Dates: start: 20100315
  6. CYCLOSPORINE [Suspect]
     Route: 048
     Dates: start: 20100408, end: 20100701
  7. PREDNISONE [Suspect]
     Route: 048
     Dates: start: 20070907, end: 20100213
  8. PREDNISONE [Suspect]
     Route: 048
     Dates: start: 20100214, end: 20100215

REACTIONS (5)
  - CHOLECYSTECTOMY [None]
  - LOWER GASTROINTESTINAL HAEMORRHAGE [None]
  - NEPHRECTOMY [None]
  - RENAL CYST INFECTION [None]
  - URINARY TRACT INFECTION [None]
